FAERS Safety Report 8075618-8 (Version None)
Quarter: 2012Q1

REPORT INFORMATION
  Report Type: 
  Country: None (occurrence: None)
  Receive Date: 20120117
  Receipt Date: 20120110
  Transmission Date: 20120608
  Serious: Yes (Life-Threatening, Hospitalization, Other)
  Sender: FDA-Public Use
  Company Number: AUR-APL-2011-02439

PATIENT
  Age: 56 Year
  Sex: Female

DRUGS (6)
  1. LYRICA [Suspect]
     Indication: PAIN IN EXTREMITY
     Dosage: 200 MG (100 MG,2 IN 1 D),ORAL
     Route: 048
     Dates: end: 20110423
  2. CRESTOR [Suspect]
     Indication: PRODUCT USED FOR UNKNOWN INDICATION
     Dosage: 40 MG (20 MG,2 IN 1 D),ORAL
     Route: 048
     Dates: end: 20110423
  3. RAMIPRIL [Suspect]
     Indication: PRODUCT USED FOR UNKNOWN INDICATION
     Dosage: 10 MG (10 MG,1 IN 1 D),ORAL
     Route: 048
     Dates: end: 20110423
  4. METFORMIN HCL [Suspect]
     Indication: PRODUCT USED FOR UNKNOWN INDICATION
     Dosage: 3000 (1000 MG,3 IN 1 D),ORAL
     Route: 048
     Dates: end: 20110423
  5. EZETIMIBE [Suspect]
     Indication: PRODUCT USED FOR UNKNOWN INDICATION
     Dosage: 10 MG (10 MG,1 IN 1 D),ORAL
     Route: 048
     Dates: end: 20110423
  6. IRBESARTAN AND HYDROCHLOROTHIAZIDE [Suspect]
     Indication: PRODUCT USED FOR UNKNOWN INDICATION
     Dosage: 300/12.5 MG (1 DOSAGE FORMS,1 IN 1 D),ORAL
     Route: 048
     Dates: end: 20110423

REACTIONS (6)
  - DRUG INTERACTION [None]
  - RENAL FAILURE ACUTE [None]
  - ACIDOSIS [None]
  - DIABETIC NEPHROPATHY [None]
  - PAIN IN EXTREMITY [None]
  - RHABDOMYOLYSIS [None]
